FAERS Safety Report 5196342-5 (Version None)
Quarter: 2006Q4

REPORT INFORMATION
  Report Type: 
  Country: None (occurrence: None)
  Receive Date: 20061222
  Receipt Date: 20061208
  Transmission Date: 20070319
  Serious: Yes (Life-Threatening)
  Sender: FDA-Public Use
  Company Number: 2006146928

PATIENT
  Age: 16 Month
  Sex: Male
  Weight: 9 kg

DRUGS (3)
  1. ZYVOX [Suspect]
     Indication: PNEUMONIA STAPHYLOCOCCAL
     Dosage: 300 MG (100 MG, 3 IN 1 D) INTRAVENOUS
     Route: 042
     Dates: start: 20061102, end: 20061123
  2. DESMOPRESSIN [Concomitant]
  3. CEFOTAX (CEFOTAXIME SODIUM) [Concomitant]

REACTIONS (2)
  - ATELECTASIS [None]
  - HYPONATRAEMIA [None]
